FAERS Safety Report 4893394-4 (Version None)
Quarter: 2006Q1

REPORT INFORMATION
  Report Type: 
  Country: None (occurrence: None)
  Receive Date: 20060124
  Receipt Date: 20060112
  Transmission Date: 20060701
  Serious: Yes (Disabling, Other)
  Sender: FDA-Public Use
  Company Number: 2006007931

PATIENT
  Age: 80 Year
  Sex: Female

DRUGS (15)
  1. NORVASC [Suspect]
     Indication: HYPERTENSION
     Dosage: SEE IMAGE
     Dates: end: 20050101
  2. NORVASC [Suspect]
     Indication: HYPERTENSION
     Dosage: SEE IMAGE
     Dates: start: 20050101
  3. DRUG, UNSPECIFIED (DRUG, UNSPECIFIED) [Concomitant]
  4. VITAMIN B12 [Suspect]
  5. VITAMIN C (VITAMIN C) [Concomitant]
  6. CAL MAG (CALCIUM, MAGNESIUM, VITAMIN D NOS) [Concomitant]
  7. ASPIRIN [Concomitant]
  8. VITAMIN B6 (VITAMIN B6) [Concomitant]
  9. B COMPLEX (NICOTINAMIDE, PYRIDOXINE HYDROCHLORIDE, RIBOFLAVIN, THIAMIN [Concomitant]
  10. LECITHIN (LECITHIN) [Concomitant]
  11. OMEGA 3 (FISH OIL) [Concomitant]
  12. CHONDROITIN/GLUCOSAMINE (CHONDROITIN, GLUCOSAMINE) [Concomitant]
  13. VITAMINS (VITAMINS) [Concomitant]
  14. POTASSIUM (POTASSIUM) [Concomitant]
  15. LOPRESSOR [Concomitant]

REACTIONS (6)
  - BLOOD PRESSURE FLUCTUATION [None]
  - DRUG INEFFECTIVE [None]
  - HEART RATE DECREASED [None]
  - HYPOAESTHESIA [None]
  - MUSCLE SPASMS [None]
  - VASCULAR OCCLUSION [None]
